FAERS Safety Report 9503896 (Version 2)
Quarter: 2013Q3

REPORT INFORMATION
  Report Type: Report from Study
  Country: US (occurrence: US)
  Receive Date: 20130906
  Receipt Date: 20130913
  Transmission Date: 20140515
  Serious: Yes (Hospitalization)
  Sender: FDA-Public Use
  Company Number: US-ABBOTT-13P-163-1140591-00

PATIENT
  Age: 54 Year
  Sex: Female
  Weight: 103.06 kg

DRUGS (3)
  1. HUMIRA [Suspect]
     Indication: CROHN^S DISEASE
     Dates: start: 20130321, end: 20130808
  2. LUMIGAN [Concomitant]
     Indication: GLAUCOMA
     Dosage: EYE DROPS
  3. ALPHAGAN [Concomitant]
     Indication: GLAUCOMA
     Dosage: EYE DROPS

REACTIONS (10)
  - Wound [Recovering/Resolving]
  - Wound [Recovering/Resolving]
  - Pyrexia [Recovered/Resolved]
  - Cellulitis [Recovering/Resolving]
  - Erythema [Recovering/Resolving]
  - Rash [Recovering/Resolving]
  - Pain in extremity [Recovering/Resolving]
  - Local swelling [Recovering/Resolving]
  - Infected bites [Recovering/Resolving]
  - Impaired healing [Not Recovered/Not Resolved]
